FAERS Safety Report 8490043-3 (Version None)
Quarter: 2012Q2

REPORT INFORMATION
  Report Type: 
  Country: None (occurrence: None)
  Receive Date: 20120626
  Receipt Date: 20120613
  Transmission Date: 20120825
  Serious: Yes (Other)
  Sender: FDA-Public Use
  Company Number: US-INDUCUS PHARMA -000002

PATIENT
  Age: 87 Year
  Sex: Male

DRUGS (10)
  1. OMEPRAZOLE [Concomitant]
  2. VITAMIN B12 [Concomitant]
  3. LORATADINE [Concomitant]
  4. ASPIRIN [Concomitant]
  5. FLUTICASONE PROPIONATE [Concomitant]
  6. SIMVASTATIN [Concomitant]
  7. DONEPEZIL HCL [Suspect]
     Indication: DEMENTIA ALZHEIMER'S TYPE
     Dosage: 10.00-MG-1.0DAYS
     Dates: start: 20110501, end: 20110801
  8. SPIRONOLACTONE [Concomitant]
  9. CARVEDILOL [Concomitant]
  10. FUROSEMIDE (FUROSEMIDE) [Concomitant]

REACTIONS (3)
  - CRYING [None]
  - POST-TRAUMATIC STRESS DISORDER [None]
  - IRRITABILITY [None]
